FAERS Safety Report 6594665-6 (Version None)
Quarter: 2010Q1

REPORT INFORMATION
  Report Type: 
  Country: None (occurrence: None)
  Receive Date: 20100222
  Receipt Date: 20100212
  Transmission Date: 20100710
  Serious: Yes (Other)
  Sender: FDA-Public Use
  Company Number: AU-AMGEN-US389630

PATIENT
  Sex: Male
  Weight: 83 kg

DRUGS (2)
  1. ENBREL [Suspect]
     Indication: RHEUMATOID ARTHRITIS
     Route: 030
     Dates: start: 20091226, end: 20100102
  2. PREDNISONE [Concomitant]
     Indication: RHEUMATOID ARTHRITIS
     Dosage: 5-10MG DAILY, 10 YEARS
     Route: 048

REACTIONS (10)
  - ARTHRALGIA [None]
  - DIARRHOEA [None]
  - INCORRECT ROUTE OF DRUG ADMINISTRATION [None]
  - LETHARGY [None]
  - MOUTH ULCERATION [None]
  - NAUSEA [None]
  - PAIN [None]
  - PYREXIA [None]
  - SOMNOLENCE [None]
  - VOMITING [None]
